FAERS Safety Report 23985706 (Version 1)
Quarter: 2024Q2

REPORT INFORMATION
  Report Type: Spontaneous
  Country: FR (occurrence: FR)
  Receive Date: 20240618
  Receipt Date: 20240618
  Transmission Date: 20240716
  Serious: Yes (Disabling)
  Sender: FDA-Public Use
  Company Number: None

PATIENT
  Age: 20 Year
  Sex: Female
  Weight: 55.8 kg

DRUGS (8)
  1. VINCRISTINE SULFATE [Suspect]
     Active Substance: VINCRISTINE SULFATE
     Indication: Pleuropulmonary blastoma
     Dosage: 9 COURSES IN TOTAL
     Route: 042
     Dates: start: 20210308, end: 20211015
  2. VINCRISTINE SULFATE [Suspect]
     Active Substance: VINCRISTINE SULFATE
     Dosage: 6 COURSES IN TOTAL
     Route: 042
     Dates: start: 20230121, end: 20230724
  3. CARBOPLATIN [Suspect]
     Active Substance: CARBOPLATIN
     Indication: Pleuropulmonary blastoma
     Dosage: 1 DF, SINGLE
     Route: 042
     Dates: start: 202209, end: 202209
  4. IRINOTECAN HYDROCHLORIDE [Suspect]
     Active Substance: IRINOTECAN HYDROCHLORIDE
     Indication: Pleuropulmonary blastoma
     Dosage: 6 COURSE IN TOTAL
     Route: 042
     Dates: start: 20230121, end: 20230724
  5. ACTINOMYCIN D [Suspect]
     Active Substance: DACTINOMYCIN
     Indication: Pleuropulmonary blastoma
     Dosage: 9 COURSES IN TOTAL
     Route: 042
     Dates: start: 20210308, end: 20211015
  6. TEMOZOLOMIDE [Suspect]
     Active Substance: TEMOZOLOMIDE
     Indication: Pleuropulmonary blastoma
     Dosage: 6 COURSES IN TOTAL
     Route: 042
     Dates: start: 20230121, end: 20230724
  7. IFOSFAMIDE [Suspect]
     Active Substance: IFOSFAMIDE
     Indication: Pleuropulmonary blastoma
     Dosage: 9 COURSES IN TOTAL
     Route: 042
     Dates: start: 20210308, end: 20211015
  8. ETOPOSIDE [Suspect]
     Active Substance: ETOPOSIDE
     Indication: Pleuropulmonary blastoma
     Dosage: 1 DF, SINGLE
     Route: 042
     Dates: start: 202209, end: 202209

REACTIONS (4)
  - Memory impairment [Not Recovered/Not Resolved]
  - Cognitive disorder [Not Recovered/Not Resolved]
  - Disturbance in attention [Not Recovered/Not Resolved]
  - Off label use [Unknown]

NARRATIVE: CASE EVENT DATE: 20210308
